FAERS Safety Report 14493352 (Version 1)
Quarter: 2018Q1

REPORT INFORMATION
  Report Type: Spontaneous
  Country: US (occurrence: US)
  Receive Date: 20180205
  Receipt Date: 20180205
  Transmission Date: 20180509
  Serious: No
  Sender: FDA-Public Use
  Company Number: None

PATIENT
  Age: 42 Year
  Sex: Female
  Weight: 110.25 kg

DRUGS (17)
  1. CALCIUM CITRATE [Concomitant]
     Active Substance: CALCIUM CITRATE
  2. ABILIFY [Concomitant]
     Active Substance: ARIPIPRAZOLE
  3. FISH OIL [Concomitant]
     Active Substance: FISH OIL
  4. CYMBALTA [Concomitant]
     Active Substance: DULOXETINE HYDROCHLORIDE
  5. METFORMIN [Concomitant]
     Active Substance: METFORMIN HYDROCHLORIDE
  6. MAXALT [Concomitant]
     Active Substance: RIZATRIPTAN BENZOATE
  7. MULTIVITAMIN [Concomitant]
     Active Substance: VITAMINS
  8. BIOTIN [Concomitant]
     Active Substance: BIOTIN
  9. DESVENLAFAXINE. [Suspect]
     Active Substance: DESVENLAFAXINE
     Indication: DEPRESSION
     Dosage: ?          QUANTITY:1 TABLET(S);?
     Route: 048
     Dates: start: 20180203, end: 20180205
  10. LAMICTAL [Concomitant]
     Active Substance: LAMOTRIGINE
  11. PRISTIQ EXTENDED-RELEASE [Concomitant]
     Active Substance: DESVENLAFAXINE SUCCINATE
  12. DEPO-PROVERA [Concomitant]
     Active Substance: MEDROXYPROGESTERONE ACETATE
  13. VITAMIN D [Concomitant]
     Active Substance: CHOLECALCIFEROL
  14. TYLENOL [Concomitant]
     Active Substance: ACETAMINOPHEN
  15. OMEPRAZOLE. [Concomitant]
     Active Substance: OMEPRAZOLE
  16. VITAMIN B12 [Concomitant]
     Active Substance: CYANOCOBALAMIN
  17. IRON [Concomitant]
     Active Substance: IRON

REACTIONS (1)
  - Peripheral swelling [None]

NARRATIVE: CASE EVENT DATE: 20180204
